FAERS Safety Report 12238533 (Version 3)
Quarter: 2016Q4

REPORT INFORMATION
  Report Type: Spontaneous
  Country: FR (occurrence: FR)
  Receive Date: 20160405
  Receipt Date: 20161130
  Transmission Date: 20170207
  Serious: Yes (Other)
  Sender: FDA-Public Use
  Company Number: FR-ALLERGAN-1648785

PATIENT
  Age: 61 Year
  Sex: Female

DRUGS (5)
  1. MOPRAL [Concomitant]
     Active Substance: OMEPRAZOLE SODIUM
     Indication: HELICOBACTER GASTRITIS
     Dosage: 20 MG, BID
     Route: 048
     Dates: start: 20151107, end: 20151115
  2. TRIATEC [Concomitant]
     Active Substance: RAMIPRIL
     Indication: HYPERTENSION
     Dosage: 5 MG, QD
     Route: 048
  3. SYMBICORT [Concomitant]
     Active Substance: BUDESONIDE\FORMOTEROL FUMARATE DIHYDRATE
     Indication: PRODUCT USED FOR UNKNOWN INDICATION
     Dosage: UNK
  4. PYLERA [Suspect]
     Active Substance: BISMUTH SUBCITRATE POTASSIUM\METRONIDAZOLE\TETRACYCLINE HYDROCHLORIDE
     Indication: HELICOBACTER GASTRITIS
     Dosage: 3 DF, QID,140/125/125MG
     Route: 048
     Dates: start: 20151107
  5. GLUCOPHAGE [Concomitant]
     Active Substance: METFORMIN HYDROCHLORIDE
     Indication: DIABETES MELLITUS
     Dosage: 500 MG, BID
     Route: 048

REACTIONS (12)
  - Eyelid oedema [Recovered/Resolved]
  - Headache [Unknown]
  - Paraesthesia [Recovered/Resolved]
  - Alopecia [Recovering/Resolving]
  - Swelling face [Recovered/Resolved]
  - Abdominal pain upper [Unknown]
  - Dizziness [Recovering/Resolving]
  - Memory impairment [Recovered/Resolved]
  - Somnolence [Unknown]
  - Insomnia [Recovered/Resolved]
  - Hepatic pain [Unknown]
  - Faeces discoloured [Unknown]

NARRATIVE: CASE EVENT DATE: 20151107
